FAERS Safety Report 7388017-9 (Version None)
Quarter: 2011Q1

REPORT INFORMATION
  Report Type: 
  Country: None (occurrence: None)
  Receive Date: 20110322
  Receipt Date: 20110314
  Transmission Date: 20110831
  Serious: Yes (Other)
  Sender: FDA-Public Use
  Company Number: 2011MA002556

PATIENT
  Sex: Male

DRUGS (2)
  1. ALCOHOL (ETHANOL) [Suspect]
  2. METFORMIN HYDROCHLORIDE [Suspect]

REACTIONS (2)
  - SYNCOPE [None]
  - MALAISE [None]
